FAERS Safety Report 5628734-1 (Version None)
Quarter: 2008Q1

REPORT INFORMATION
  Report Type: 
  Country: None (occurrence: None)
  Receive Date: 20080215
  Receipt Date: 20080205
  Transmission Date: 20080703
  Serious: Yes (Other)
  Sender: FDA-Public Use
  Company Number: US-PFIZER INC-2008012088

PATIENT
  Sex: Male
  Weight: 84.4 kg

DRUGS (12)
  1. CHANTIX [Suspect]
     Indication: SMOKING CESSATION THERAPY
     Route: 048
     Dates: start: 20071217, end: 20071231
  2. HYZAAR [Concomitant]
  3. SIMVASTATIN [Concomitant]
  4. LOTREL [Concomitant]
  5. TAMSULOSIN HCL [Concomitant]
  6. AVODART [Concomitant]
  7. ADVAIR DISKUS 100/50 [Concomitant]
  8. ALBUTEROL [Concomitant]
  9. WELLBUTRIN XL [Concomitant]
  10. ASCORBIC ACID [Concomitant]
  11. FOLIC ACID [Concomitant]
  12. ECOTRIN [Concomitant]

REACTIONS (5)
  - ABNORMAL DREAMS [None]
  - ANGER [None]
  - BLOOD CHOLESTEROL INCREASED [None]
  - BLOOD GLUCOSE INCREASED [None]
  - HIGH DENSITY LIPOPROTEIN [None]
